FAERS Safety Report 7690755-5 (Version None)
Quarter: 2011Q3

REPORT INFORMATION
  Report Type: 
  Country: None (occurrence: None)
  Receive Date: 20110812
  Receipt Date: 20110107
  Transmission Date: 20111222
  Serious: Yes (Disabling, Other)
  Sender: FDA-Public Use
  Company Number: ALA_01179_2010

PATIENT
  Sex: Female
  Weight: 90.7194 kg

DRUGS (42)
  1. DETROL LA [Concomitant]
  2. MULTIVITAMIN [Concomitant]
  3. CERTAVITE WITH LUTEIN [Concomitant]
  4. REGLAN [Suspect]
     Indication: GASTROOESOPHAGEAL REFLUX DISEASE
     Dosage: (10 MG BEFORE MEALS AND AT BEDTIME ORAL)
     Route: 048
     Dates: start: 20050106, end: 20060308
  5. MIACALCIN [Concomitant]
  6. DULCOLAX [Concomitant]
  7. PRILOSEC [Concomitant]
  8. LEVOTHROID [Concomitant]
  9. SULFAMETHOXAZOLE AND THRIMETHOPRIM [Concomitant]
  10. ESTRACE [Concomitant]
  11. ZESTRIL [Concomitant]
  12. PREVACID [Concomitant]
  13. BISACODYL [Concomitant]
  14. TEGRETOL [Concomitant]
  15. DARVOCET-N 50 [Concomitant]
  16. FAMOTIDINE [Concomitant]
  17. ROCEPHIN [Concomitant]
  18. NIFEDICAL [Concomitant]
  19. TYLENOL REGULAR [Concomitant]
  20. CLINDAMYCIN HCL [Concomitant]
  21. LISINOPRIL [Concomitant]
  22. MECLIZINE [Concomitant]
  23. ZITHROMAX [Concomitant]
  24. NITROFURANTOIN [Concomitant]
  25. COZAAR [Concomitant]
  26. CARBAMAZEPINE [Concomitant]
  27. KENALOG [Concomitant]
  28. PROCARDIA [Concomitant]
  29. SERTRALINE HYDROCHLORIDE [Concomitant]
  30. CIPRODEX OTIC [Concomitant]
  31. URISED [Concomitant]
  32. CYMBALTA [Concomitant]
  33. NIFEDIPINE [Concomitant]
  34. DIPHENHYDRAMINE HCL [Concomitant]
  35. PROMETHAZINE [Concomitant]
  36. ANTIVERT [Concomitant]
  37. DOCUSATE [Concomitant]
  38. LIDODERM [Concomitant]
  39. RESTASIS [Concomitant]
  40. CEFTRIAXONE [Concomitant]
  41. NITROSTAT [Concomitant]
  42. CALCIUM PLUS VITAMIN D [Concomitant]

REACTIONS (17)
  - ASTHENIA [None]
  - PROTRUSION TONGUE [None]
  - MUSCULOSKELETAL STIFFNESS [None]
  - DEMENTIA [None]
  - PSYCHOSOMATIC DISEASE [None]
  - EXTRAPYRAMIDAL DISORDER [None]
  - DEMENTIA ALZHEIMER'S TYPE [None]
  - RASH [None]
  - TARDIVE DYSKINESIA [None]
  - DYSARTHRIA [None]
  - GAIT DISTURBANCE [None]
  - EMOTIONAL DISORDER [None]
  - MUSCULAR WEAKNESS [None]
  - BLUNTED AFFECT [None]
  - PARKINSONISM [None]
  - ECONOMIC PROBLEM [None]
  - DISTURBANCE IN ATTENTION [None]
